FAERS Safety Report 5170780-9 (Version None)
Quarter: 2006Q4

REPORT INFORMATION
  Report Type: 
  Country: None (occurrence: None)
  Receive Date: 20060919
  Receipt Date: 20060519
  Transmission Date: 20070319
  Serious: No
  Sender: FDA-Public Use
  Company Number: BDI-008271

PATIENT
  Age: 18 Year
  Sex: Male
  Weight: 100 kg

DRUGS (2)
  1. MULTIHANCE [Suspect]
     Indication: HEADACHE
     Dosage: 20 ML ONCE IV
     Route: 042
     Dates: start: 20060519, end: 20060519
  2. MULTIHANCE [Suspect]
     Indication: NUCLEAR MAGNETIC RESONANCE IMAGING BRAIN
     Dosage: 20 ML ONCE IV
     Route: 042
     Dates: start: 20060519, end: 20060519

REACTIONS (1)
  - NAUSEA [None]
